FAERS Safety Report 15922738 (Version 1)
Quarter: 2019Q1

REPORT INFORMATION
  Report Type: Spontaneous
  Country: US (occurrence: US)
  Receive Date: 20190205
  Receipt Date: 20190205
  Transmission Date: 20190417
  Serious: Yes (Hospitalization)
  Sender: FDA-Public Use
  Company Number: None

PATIENT
  Age: 73 Year
  Sex: Male
  Weight: 86.4 kg

DRUGS (2)
  1. GEMCITABINE [Suspect]
     Active Substance: GEMCITABINE\GEMCITABINE HYDROCHLORIDE
     Indication: CHEMOTHERAPY
     Dosage: ?          OTHER FREQUENCY:D1 AND D8;?
     Route: 042
     Dates: start: 20181128, end: 20190124
  2. CISPLATIN. [Suspect]
     Active Substance: CISPLATIN
     Indication: CHEMOTHERAPY
     Dosage: ?          OTHER FREQUENCY:D1 AND D8;?
     Route: 042
     Dates: start: 20181128, end: 20190124

REACTIONS (3)
  - Rash [None]
  - Balance disorder [None]
  - Pyrexia [None]

NARRATIVE: CASE EVENT DATE: 20190203
